FAERS Safety Report 4394339-6 (Version None)
Quarter: 2004Q3

REPORT INFORMATION
  Report Type: 
  Country: None (occurrence: None)
  Receive Date: 20040707
  Receipt Date: 20040623
  Transmission Date: 20050211
  Serious: Yes (Other)
  Sender: FDA-Public Use
  Company Number: 188685

PATIENT
  Age: 34 Year
  Sex: Female
  Weight: 41.7309 kg

DRUGS (6)
  1. AVONEX [Suspect]
     Indication: MULTIPLE SCLEROSIS
     Dosage: 30 MCG QW IM
     Route: 030
     Dates: start: 20020507, end: 20030801
  2. AVONEX [Suspect]
     Indication: MULTIPLE SCLEROSIS
     Dosage: 30 MCG QW IM
     Route: 030
     Dates: start: 20030801, end: 20031001
  3. AVONEX [Suspect]
     Indication: MULTIPLE SCLEROSIS
     Dosage: 15 MCG QW IM
     Route: 030
     Dates: start: 20031001
  4. LIBRAX [Concomitant]
  5. DELESTROGEN [Concomitant]
  6. PHENERGAN ^SPECIA^ [Concomitant]

REACTIONS (17)
  - ANOREXIA [None]
  - CERVIX CARCINOMA [None]
  - CONDITION AGGRAVATED [None]
  - DEPRESSION [None]
  - FLUID RETENTION [None]
  - GASTROINTESTINAL DISORDER [None]
  - INFLUENZA LIKE ILLNESS [None]
  - INSOMNIA [None]
  - MIGRAINE [None]
  - MULTIPLE SCLEROSIS [None]
  - NEPHROLITHIASIS [None]
  - NERVOUSNESS [None]
  - PEPTIC ULCER [None]
  - URINARY TRACT INFECTION [None]
  - VAGINAL MYCOSIS [None]
  - VERTIGO [None]
  - WEIGHT DECREASED [None]
